FAERS Safety Report 23152039 (Version 2)
Quarter: 2023Q4

REPORT INFORMATION
  Report Type: Spontaneous
  Country: GB (occurrence: GB)
  Receive Date: 20231107
  Receipt Date: 20231207
  Transmission Date: 20240110
  Serious: Yes (Death, Other)
  Sender: FDA-Public Use
  Company Number: GB-TAKEDA-2023TUS106643

PATIENT
  Age: 64 Year
  Sex: Male

DRUGS (1)
  1. LIVTENCITY [Suspect]
     Active Substance: MARIBAVIR
     Indication: Product used for unknown indication
     Dosage: UNK
     Route: 065

REACTIONS (6)
  - Clostridium difficile infection [Fatal]
  - Norovirus infection [Fatal]
  - Post procedural complication [Fatal]
  - Renal failure [Fatal]
  - Acute kidney injury [Fatal]
  - Diarrhoea [Fatal]
